FAERS Safety Report 8718720 (Version 2)
Quarter: 2012Q4

REPORT INFORMATION
  Report Type: 
  Country: US (occurrence: US)
  Receive Date: 20120810
  Receipt Date: 20120925
  Transmission Date: 20130627
  Serious: No
  Sender: FDA-Public Use
  Company Number: US-ASTRAZENECA-2011SE78887

PATIENT
  Age: 89 Year
  Sex: Female
  Weight: 59.9 kg

DRUGS (4)
  1. ARIMIDEX [Suspect]
     Route: 048
     Dates: start: 20101001
  2. CALCIUM [Concomitant]
     Indication: BONE DISORDER
  3. VITAMIN D [Concomitant]
     Indication: BONE DISORDER
  4. NAPROXEN [Concomitant]
     Route: 048

REACTIONS (8)
  - Visual impairment [Unknown]
  - Macular degeneration [Unknown]
  - Renal failure chronic [Unknown]
  - Depression [Unknown]
  - Arthralgia [Unknown]
  - Osteoarthritis [Unknown]
  - Hyperkeratosis [Unknown]
  - Hearing impaired [None]
